FAERS Safety Report 9370334 (Version 1)
Quarter: 2013Q2

REPORT INFORMATION
  Report Type: Spontaneous
  Country: IT (occurrence: IT)
  Receive Date: 20130626
  Receipt Date: 20130626
  Transmission Date: 20140414
  Serious: Yes (Life-Threatening)
  Sender: FDA-Public Use
  Company Number: IT-TEVA-413837ISR

PATIENT
  Age: 46 Year
  Sex: Male

DRUGS (4)
  1. DIAZEPAM [Suspect]
     Indication: SUICIDE ATTEMPT
     Dates: start: 20130608, end: 20130608
  2. METADONE CLORIDRATO [Suspect]
     Indication: SUICIDE ATTEMPT
     Dates: start: 20130608, end: 20130608
  3. METADONE CLORIDRATO [Suspect]
     Indication: DRUG DEPENDENCE
  4. FENCICLIDINA [Suspect]
     Indication: SUICIDE ATTEMPT
     Dates: start: 20130608, end: 20130608

REACTIONS (5)
  - Drug abuse [Recovered/Resolved]
  - Tachycardia [Recovered/Resolved]
  - Sopor [Recovered/Resolved]
  - Vomiting [Recovered/Resolved]
  - Rales [Recovered/Resolved]
